FAERS Safety Report 7423634-9 (Version None)
Quarter: 2011Q2

REPORT INFORMATION
  Report Type: 
  Country: None (occurrence: None)
  Receive Date: 20110413
  Receipt Date: 20110413
  Transmission Date: 20111010
  Serious: Yes (Hospitalization)
  Sender: FDA-Public Use
  Company Number: None

PATIENT
  Age: 21 Year
  Sex: Female
  Weight: 65 kg

DRUGS (1)
  1. ASPIRIN [Suspect]
     Indication: HEADACHE
     Dosage: 2 TABLETS Q 1-2 HRS PO RECENT X MULTIPLE DOSES
     Route: 048

REACTIONS (3)
  - RESPIRATORY ALKALOSIS [None]
  - ANALGESIC DRUG LEVEL INCREASED [None]
  - METABOLIC ACIDOSIS [None]
